FAERS Safety Report 11640310 (Version 2)
Quarter: 2015Q4

REPORT INFORMATION
  Report Type: Spontaneous
  Country: NO (occurrence: NO)
  Receive Date: 20151019
  Receipt Date: 20151028
  Transmission Date: 20160304
  Serious: Yes (Hospitalization, Other)
  Sender: FDA-Public Use
  Company Number: NO-GLAXOSMITHKLINE-NO2015GSK147966

PATIENT
  Age: 55 Year
  Sex: Female

DRUGS (1)
  1. NEOTIGASON [Suspect]
     Active Substance: ACITRETIN
     Indication: DERMATITIS PSORIASIFORM
     Dosage: UNK
     Dates: start: 20150708, end: 20150728

REACTIONS (3)
  - Retinal artery embolism [Unknown]
  - Retinal haemorrhage [Recovered/Resolved]
  - Blindness [Recovered/Resolved]

NARRATIVE: CASE EVENT DATE: 20150728
